FAERS Safety Report 5906612-8 (Version None)
Quarter: 2008Q4

REPORT INFORMATION
  Report Type: 
  Country: None (occurrence: None)
  Receive Date: 20081002
  Receipt Date: 20080922
  Transmission Date: 20090506
  Serious: Yes (Other)
  Sender: FDA-Public Use
  Company Number: US-ELI_LILLY_AND_COMPANY-US200809005001

PATIENT
  Sex: Female
  Weight: 90.703 kg

DRUGS (12)
  1. BYETTA [Suspect]
     Indication: TYPE 2 DIABETES MELLITUS
     Dosage: 10 UG, 2/D
     Route: 058
     Dates: start: 20050101, end: 20080922
  2. HUMALOG [Concomitant]
     Dosage: UNK, AS NEEDED
     Dates: start: 20080701
  3. LEVEMIR [Concomitant]
     Dosage: UNK, UNKNOWN
     Route: 058
     Dates: start: 20080701
  4. METOPROLOL TARTRATE [Concomitant]
     Indication: HYPERTENSION
     Dosage: UNK, UNKNOWN
  5. DIOVAN [Concomitant]
     Indication: HYPERTENSION
     Dosage: UNK, UNKNOWN
  6. TRICOR [Concomitant]
     Indication: BLOOD CHOLESTEROL
     Dosage: UNK, UNKNOWN
  7. PLAVIX [Concomitant]
     Indication: CARDIAC OPERATION
     Dosage: 75 MG, DAILY (1/D)
     Route: 048
  8. CLONIDINE [Concomitant]
     Indication: HYPERTENSION
     Dosage: UNK, UNKNOWN
  9. NITROGLYCERIN [Concomitant]
     Dosage: 0.3 MG, UNKNOWN
     Route: 062
  10. AMBIEN [Concomitant]
     Indication: INSOMNIA
     Dosage: UNK, UNKNOWN
  11. VYTORIN [Concomitant]
     Indication: BLOOD CHOLESTEROL
     Dosage: UNK, UNKNOWN
  12. ASPIRIN [Concomitant]
     Dosage: 81 MG, DAILY (1/D)
     Route: 048

REACTIONS (7)
  - ABDOMINAL PAIN UPPER [None]
  - CARDIAC DISORDER [None]
  - DECREASED APPETITE [None]
  - NAUSEA [None]
  - PANCREATIC DISORDER [None]
  - PANCREATITIS [None]
  - WEIGHT DECREASED [None]
